FAERS Safety Report 9426955 (Version 1)
Quarter: 2013Q3

REPORT INFORMATION
  Report Type: Report from Study
  Country: US (occurrence: US)
  Receive Date: 20130730
  Receipt Date: 20130730
  Transmission Date: 20140515
  Serious: No
  Sender: FDA-Public Use
  Company Number: US-ABBOTT-12P-163-0974090-00

PATIENT
  Age: 41 Year
  Sex: Female
  Weight: 68.1 kg

DRUGS (2)
  1. NIASPAN (COATED) 500MG [Suspect]
     Indication: HIGH DENSITY LIPOPROTEIN DECREASED
     Dates: start: 201208
  2. NIASPAN (COATED) 500MG [Suspect]
     Indication: BLOOD TRIGLYCERIDES INCREASED

REACTIONS (2)
  - Flushing [Recovered/Resolved]
  - Generalised erythema [Recovered/Resolved]
